FAERS Safety Report 20962686 (Version 3)
Quarter: 2025Q3

REPORT INFORMATION
  Report Type: Spontaneous
  Country: US (occurrence: US)
  Receive Date: 20220615
  Receipt Date: 20250922
  Transmission Date: 20251020
  Serious: Yes (Hospitalization, Other)
  Sender: SK LIFE SCIENCE
  Company Number: US-SK LIFE SCIENCE, INC-SKPVG-2022-000424

PATIENT

DRUGS (7)
  1. XCOPRI [Suspect]
     Active Substance: CENOBAMATE
     Indication: Seizure
     Route: 048
  2. XCOPRI [Suspect]
     Active Substance: CENOBAMATE
     Route: 048
  3. XCOPRI [Suspect]
     Active Substance: CENOBAMATE
     Dosage: 100 MILLIGRAM, QD
     Route: 048
  4. XCOPRI [Suspect]
     Active Substance: CENOBAMATE
     Dosage: ONE 50MG TABLET IN THE MORNING AND ONE 50MG TABLET AT NIGHT
     Route: 048
  5. XCOPRI [Suspect]
     Active Substance: CENOBAMATE
     Route: 048
  6. XCOPRI [Suspect]
     Active Substance: CENOBAMATE
     Dosage: 150 MG (ONE 100 MG TABLET AND TWO 25 MG TABLET) IN THE MORNING
     Route: 048
     Dates: start: 20250910
  7. XCOPRI [Suspect]
     Active Substance: CENOBAMATE
     Dosage: 150 MG (ONE 100 MG TABLET AND TWO 25 MG TABLET) IN THE MORNING
     Route: 048
     Dates: start: 20250910

REACTIONS (9)
  - Cardiac failure congestive [Unknown]
  - Nervousness [Unknown]
  - Sleep disorder [Not Recovered/Not Resolved]
  - Insomnia [Unknown]
  - Seizure [Unknown]
  - Off label use [Recovered/Resolved]
  - Urinary incontinence [Unknown]
  - Drug intolerance [Unknown]
  - Somnolence [Not Recovered/Not Resolved]

NARRATIVE: CASE EVENT DATE: 20250911
